FAERS Safety Report 7138552-3 (Version None)
Quarter: 2010Q4

REPORT INFORMATION
  Report Type: 
  Country: None (occurrence: None)
  Receive Date: 20101201
  Receipt Date: 20101201
  Transmission Date: 20110411
  Serious: Yes (Hospitalization, Other)
  Sender: FDA-Public Use
  Company Number: None

PATIENT
  Sex: Male
  Weight: 83.9154 kg

DRUGS (2)
  1. GABAPENTIN [Suspect]
     Dosage: 1800MG PER DAY
     Dates: start: 20091220, end: 20100115
  2. ABAPENTIN [Concomitant]

REACTIONS (3)
  - AMNESIA [None]
  - INCORRECT DOSE ADMINISTERED [None]
  - LOSS OF CONSCIOUSNESS [None]
